FAERS Safety Report 8192574-2 (Version None)
Quarter: 2012Q1

REPORT INFORMATION
  Report Type: 
  Country: None (occurrence: None)
  Receive Date: 20120308
  Receipt Date: 20120227
  Transmission Date: 20120608
  Serious: Yes (Other)
  Sender: FDA-Public Use
  Company Number: US-BAYER-2012-020424

PATIENT
  Sex: Female

DRUGS (1)
  1. MIRENA [Suspect]
     Indication: MENORRHAGIA
     Dosage: UNK
     Dates: start: 20080801, end: 20110601

REACTIONS (23)
  - HOT FLUSH [None]
  - AMENORRHOEA [None]
  - ABDOMINAL PAIN [None]
  - PANIC ATTACK [None]
  - DEPRESSION [None]
  - MUSCLE SPASMS [None]
  - DIZZINESS [None]
  - PALPITATIONS [None]
  - MENORRHAGIA [None]
  - DRY EYE [None]
  - DRY MOUTH [None]
  - OVARIAN CYST [None]
  - FATIGUE [None]
  - SUICIDAL IDEATION [None]
  - INSOMNIA [None]
  - VAGINAL DISCHARGE [None]
  - ALOPECIA [None]
  - NIGHT SWEATS [None]
  - CRYING [None]
  - MIGRAINE [None]
  - NIPPLE PAIN [None]
  - WEIGHT INCREASED [None]
  - SKIN BURNING SENSATION [None]
